FAERS Safety Report 7767742-1 (Version None)
Quarter: 2011Q3

REPORT INFORMATION
  Report Type: 
  Country: None (occurrence: None)
  Receive Date: 20110922
  Receipt Date: 20110418
  Transmission Date: 20111222
  Serious: No
  Sender: FDA-Public Use
  Company Number: US-ASTRAZENECA-2006UW19017

PATIENT
  Age: 33 Year
  Sex: Female
  Weight: 85.7 kg

DRUGS (6)
  1. ARIPIPRAZOLE [Concomitant]
     Dates: start: 20040101, end: 20060101
  2. SEROQUEL [Suspect]
     Indication: SCHIZOAFFECTIVE DISORDER
     Dosage: 25 MG-125 MG
     Route: 048
     Dates: start: 20040301, end: 20050901
  3. ZIPRASIDONE HYDROCHLORIDE [Concomitant]
     Dates: start: 20090101
  4. RISPERIDONE [Concomitant]
     Dates: start: 20040101, end: 20050101
  5. SEROQUEL [Suspect]
     Indication: BIPOLAR DISORDER
     Dosage: 25 MG-125 MG
     Route: 048
     Dates: start: 20040301, end: 20050901
  6. ZOLOFT [Concomitant]
     Dates: start: 20000101

REACTIONS (4)
  - BLOOD CHOLESTEROL INCREASED [None]
  - DIABETIC COMPLICATION [None]
  - TYPE 2 DIABETES MELLITUS [None]
  - HYPERLIPIDAEMIA [None]
